FAERS Safety Report 6665271-X (Version None)
Quarter: 2010Q1

REPORT INFORMATION
  Report Type: 
  Country: None (occurrence: None)
  Receive Date: 20100331
  Receipt Date: 20100326
  Transmission Date: 20100710
  Serious: Yes (Other)
  Sender: FDA-Public Use
  Company Number: RB-05615-2010

PATIENT
  Age: 64 Year
  Sex: Female

DRUGS (1)
  1. MUCINEX [Suspect]
     Indication: SINUS CONGESTION
     Dosage: 600 MG BID TOOK TWO ON WEDNESDAY AND TWO YESTERDAY MORNING ORAL
     Route: 048
     Dates: start: 20100324

REACTIONS (1)
  - BLOOD PRESSURE INCREASED [None]
